FAERS Safety Report 15179488 (Version 2)
Quarter: 2018Q3

REPORT INFORMATION
  Report Type: Other
  Country: GB (occurrence: GB)
  Receive Date: 20180723
  Receipt Date: 20180723
  Transmission Date: 20181010
  Serious: No
  Sender: FDA-Public Use
  Company Number: GB-LUPIN PHARMACEUTICALS INC.-2018-02807

PATIENT
  Sex: Male

DRUGS (1)
  1. ABACAVIR AND LAMIVUDINE TABLETS [Suspect]
     Active Substance: ABACAVIR\LAMIVUDINE
     Indication: HIV INFECTION
     Dosage: 1 DF, QD, 600/300MG
     Route: 048
     Dates: start: 20161229, end: 20170905

REACTIONS (4)
  - Abdominal distension [Unknown]
  - Eructation [Unknown]
  - Abdominal discomfort [Unknown]
  - Product substitution issue [Unknown]
